FAERS Safety Report 11674189 (Version 1)
Quarter: 2015Q4

REPORT INFORMATION
  Report Type: Spontaneous
  Country: IE (occurrence: IE)
  Receive Date: 20151028
  Receipt Date: 20151028
  Transmission Date: 20160304
  Serious: Yes (Hospitalization)
  Sender: FDA-Public Use
  Company Number: IE-ROCHE-1651563

PATIENT
  Sex: Male

DRUGS (3)
  1. ROCEPHIN [Suspect]
     Active Substance: CEFTRIAXONE SODIUM
     Indication: PRODUCT USED FOR UNKNOWN INDICATION
     Route: 042
     Dates: start: 20151008
  2. VANCOMYCIN [Concomitant]
     Active Substance: VANCOMYCIN
     Route: 065
  3. SODIUM CHLORIDE. [Concomitant]
     Active Substance: SODIUM CHLORIDE
     Route: 065

REACTIONS (1)
  - Malaise [Unknown]
